FAERS Safety Report 23427929 (Version 2)
Quarter: 2024Q1

REPORT INFORMATION
  Report Type: Spontaneous
  Country: BE (occurrence: BE)
  Receive Date: 20240122
  Receipt Date: 20240221
  Transmission Date: 20240409
  Serious: Yes (Death, Hospitalization, Other)
  Sender: FDA-Public Use
  Company Number: BE-BEH-2024167488

PATIENT
  Age: 75 Year
  Sex: Male

DRUGS (2)
  1. PRIVIGEN [Suspect]
     Active Substance: HUMAN IMMUNOGLOBULIN G
     Indication: Multifocal motor neuropathy
     Dosage: 1 GRAM PER KILOGRAM, EVERY 4 WEEKS
     Route: 065
     Dates: start: 2018, end: 202312
  2. PRIVIGEN [Suspect]
     Active Substance: HUMAN IMMUNOGLOBULIN G
     Dosage: 1.3 GRAM PER KILOGRAM, EVERY 4 WEEKS
     Route: 065
     Dates: start: 2018, end: 202312

REACTIONS (12)
  - Central nervous system lymphoma [Fatal]
  - Gait inability [Recovered/Resolved]
  - Urinary incontinence [Recovered/Resolved]
  - Urinary tract infection [Unknown]
  - Urinary retention [Unknown]
  - General physical health deterioration [Unknown]
  - Somnolence [Unknown]
  - Pain [Unknown]
  - Anxiety [Unknown]
  - Lack of spontaneous speech [Unknown]
  - Memory impairment [Unknown]
  - Cerebral haemorrhage [Unknown]

NARRATIVE: CASE EVENT DATE: 20230101
